FAERS Safety Report 13784007 (Version 4)
Quarter: 2017Q3

REPORT INFORMATION
  Report Type: Spontaneous
  Country: IT (occurrence: IT)
  Receive Date: 20170724
  Receipt Date: 20170929
  Transmission Date: 20171127
  Serious: Yes (Other)
  Sender: FDA-Public Use
  Company Number: IT-TEVA-791243ACC

PATIENT
  Age: 18 Year
  Sex: Male

DRUGS (11)
  1. ETOPOSIDE. [Suspect]
     Active Substance: ETOPOSIDE
     Dosage: 2ND-LINE TREATMENT WITH STANDARD DOSE
     Route: 065
  2. CARBOPLATIN. [Suspect]
     Active Substance: CARBOPLATIN
     Indication: NEUROBLASTOMA
     Route: 065
  3. EPIRUBICIN [Suspect]
     Active Substance: EPIRUBICIN
     Indication: NEUROBLASTOMA
     Dosage: 1ST-LINE TREATMENT WITH STANDARD DOSE CHEMOTHERAPY
     Route: 065
  4. CISPLATIN. [Suspect]
     Active Substance: CISPLATIN
     Indication: NEUROBLASTOMA
     Dosage: 1ST-LINE TREATMENT WITH STANDARD DOSE
     Route: 065
  5. VINCRISTINE [Suspect]
     Active Substance: VINCRISTINE
     Indication: NEUROBLASTOMA
     Dosage: 1ST-LINE TREATMENT WITH STANDARD DOSE CHEMOTHERAPY
     Route: 065
  6. ETOPOSIDE. [Suspect]
     Active Substance: ETOPOSIDE
     Indication: NEUROBLASTOMA
     Dosage: 1ST-LINE TREATMENT WITH STANDARD DOSE
     Route: 065
  7. ETOPOSIDE. [Suspect]
     Active Substance: ETOPOSIDE
     Dosage: HIGH DOSE
  8. CYCLOPHOSPHAMIDE. [Suspect]
     Active Substance: CYCLOPHOSPHAMIDE
     Indication: NEUROBLASTOMA
     Dosage: HIGH-DOSE
     Route: 065
  9. MELPHALAN. [Suspect]
     Active Substance: MELPHALAN
     Indication: NEUROBLASTOMA
     Dosage: HIGH-DOSE
     Route: 065
  10. MITOXANTRONE [Suspect]
     Active Substance: MITOXANTRONE HYDROCHLORIDE
     Indication: NEUROBLASTOMA
     Dosage: HIGH-DOSE
     Route: 065
  11. IFOSFAMIDE. [Suspect]
     Active Substance: IFOSFAMIDE
     Indication: NEUROBLASTOMA
     Dosage: 1ST-LINE TREATMENT WITH STANDARD DOSE CHEMOTHERAPY
     Route: 065

REACTIONS (1)
  - Ameloblastoma [Recovered/Resolved]
